FAERS Safety Report 25339096 (Version 2)
Quarter: 2025Q3

REPORT INFORMATION
  Report Type: Spontaneous
  Country: US (occurrence: US)
  Receive Date: 20250521
  Receipt Date: 20250826
  Transmission Date: 20251021
  Serious: No
  Sender: AMNEAL
  Company Number: US-AMNEAL PHARMACEUTICALS-2025-AMRX-01534

PATIENT
  Sex: Female
  Weight: 52.2 kg

DRUGS (13)
  1. CREXONT [Suspect]
     Active Substance: CARBIDOPA\LEVODOPA
     Indication: Parkinson^s disease
     Route: 065
     Dates: start: 202503
  2. ORENITRAM [Suspect]
     Active Substance: TREPROSTINIL
     Indication: Pulmonary arterial hypertension
     Route: 048
     Dates: start: 20210310
  3. ORENITRAM [Suspect]
     Active Substance: TREPROSTINIL
     Dosage: 0.375MG IN MORNING AND AFTERNOON EACH AND 0.5 MG IN EVENING TID
     Route: 048
     Dates: start: 20230324, end: 202504
  4. ORENITRAM [Suspect]
     Active Substance: TREPROSTINIL
     Dosage: 0.375MG IN MORNING AND AFTERNOON EACH AND 0.5 MG IN EVENING TID
     Route: 048
     Dates: start: 202504, end: 202504
  5. ORENITRAM [Suspect]
     Active Substance: TREPROSTINIL
     Dosage: 0.375MG IN MORNING AND AFTERNOON EACH AND 0.25 MG IN EVENING TID
     Route: 048
     Dates: start: 202504
  6. VITAMIN C [Concomitant]
     Active Substance: ASCORBIC ACID
     Indication: Product used for unknown indication
     Route: 065
  7. TYLENOL EXTRA STRENGTH [Concomitant]
     Active Substance: ACETAMINOPHEN
     Indication: Product used for unknown indication
     Route: 065
  8. VITAMIN D3 [Concomitant]
     Active Substance: CHOLECALCIFEROL
     Indication: Product used for unknown indication
     Route: 065
  9. VITAMIN B-1 [THIAMINE HYDROCHLORIDE] [Concomitant]
     Indication: Product used for unknown indication
     Route: 065
  10. ANASTROZOLE [Concomitant]
     Active Substance: ANASTROZOLE
     Indication: Product used for unknown indication
     Route: 065
  11. ELIQUIS [Concomitant]
     Active Substance: APIXABAN
     Indication: Product used for unknown indication
     Route: 065
  12. VITAMINS [Concomitant]
     Active Substance: VITAMINS
     Indication: Product used for unknown indication
     Route: 065
  13. AMLODIPINE BESYLATE\BENAZEPRIL HYDROCHLORIDE [Concomitant]
     Active Substance: AMLODIPINE BESYLATE\BENAZEPRIL HYDROCHLORIDE
     Indication: Product used for unknown indication
     Route: 065

REACTIONS (6)
  - Tremor [Not Recovered/Not Resolved]
  - Muscle twitching [Not Recovered/Not Resolved]
  - Dizziness postural [Not Recovered/Not Resolved]
  - Chest discomfort [Unknown]
  - Chest pain [Unknown]
  - Drug tolerance decreased [Unknown]
